FAERS Safety Report 8384269-7 (Version None)
Quarter: 2012Q2

REPORT INFORMATION
  Report Type: 
  Country: None (occurrence: None)
  Receive Date: 20120524
  Receipt Date: 20120521
  Transmission Date: 20120825
  Serious: Yes (Death)
  Sender: FDA-Public Use
  Company Number: US-CELGENEUS-163-21880-12050809

PATIENT
  Sex: Male

DRUGS (6)
  1. GABAPENTIN [Concomitant]
     Dosage: 400 MILLIGRAM
     Route: 048
  2. COUMADIN [Concomitant]
     Indication: PULMONARY EMBOLISM
     Dosage: 3 MILLIGRAM
     Route: 048
  3. VITAMIN D [Concomitant]
     Indication: VITAMIN D DECREASED
     Dosage: 50,000 UNITS
     Route: 048
  4. TAMSULOSIN HCL [Concomitant]
     Dosage: .4 MILLIGRAM
     Route: 048
  5. PRILOSEC [Concomitant]
     Dosage: 20 MILLIGRAM
     Route: 048
  6. REVLIMID [Suspect]
     Indication: MULTIPLE MYELOMA
     Dosage: 25 MILLIGRAM
     Route: 048
     Dates: start: 20120402, end: 20120101

REACTIONS (2)
  - RESPIRATORY FAILURE [None]
  - MULTIPLE MYELOMA [None]
